FAERS Safety Report 9413380 (Version 1)
Quarter: 2013Q3

REPORT INFORMATION
  Report Type: Spontaneous
  Country: SA (occurrence: None)
  Receive Date: 20130709
  Receipt Date: 20130709
  Transmission Date: 20140515
  Serious: Yes (Congenital Anomaly)
  Sender: FDA-Public Use
  Company Number: 09-AUR-09978

PATIENT
  Sex: Female

DRUGS (1)
  1. FINASTERIDE (FINASTERIDE) [Suspect]
     Indication: ANDROGENETIC ALOPECIA
     Dosage: (1 MG, 1 D), UNKNOWN

REACTIONS (6)
  - Maternal drugs affecting foetus [None]
  - Congenital hand malformation [None]
  - Brachydactyly [None]
  - Phalangeal agenesis [None]
  - Cafe au lait spots [None]
  - Congenital foot malformation [None]
